FAERS Safety Report 11173920 (Version 6)
Quarter: 2016Q1

REPORT INFORMATION
  Report Type: Report from Study
  Country: BR (occurrence: BR)
  Receive Date: 20150609
  Receipt Date: 20160106
  Transmission Date: 20160525
  Serious: Yes (Life-Threatening, Hospitalization, Other)
  Sender: FDA-Public Use
  Company Number: BR-ROCHE-1590919

PATIENT
  Age: 39 Year
  Sex: Female
  Weight: 86 kg

DRUGS (4)
  1. RELVAR [Concomitant]
     Active Substance: FLUTICASONE FUROATE\VILANTEROL TRIFENATATE
  2. MONTELUCAST [Concomitant]
     Active Substance: MONTELUKAST SODIUM
     Route: 065
  3. XOLAIR [Suspect]
     Active Substance: OMALIZUMAB
     Indication: ASTHMA
     Dosage: TWO DOSES
     Route: 058
     Dates: start: 20150415, end: 20150430
  4. FLUTICASONE [Concomitant]
     Active Substance: FLUTICASONE\FLUTICASONE PROPIONATE
     Route: 065

REACTIONS (19)
  - Visual acuity reduced [Recovering/Resolving]
  - Vasculitis [Recovering/Resolving]
  - Tremor [Recovering/Resolving]
  - Swelling [Recovering/Resolving]
  - Vascular rupture [Unknown]
  - Apparent death [Unknown]
  - Blister [Recovering/Resolving]
  - Thrombosis [Recovered/Resolved]
  - Arthralgia [Recovering/Resolving]
  - Cerebrovascular accident [Recovered/Resolved]
  - Epistaxis [Recovered/Resolved]
  - Pain in extremity [Recovering/Resolving]
  - Weight increased [Not Recovered/Not Resolved]
  - Respiratory tract infection [Recovering/Resolving]
  - Papule [Recovering/Resolving]
  - Chills [Recovering/Resolving]
  - Fluid retention [Not Recovered/Not Resolved]
  - Skin disorder [Recovering/Resolving]
  - Blood glucose increased [Unknown]

NARRATIVE: CASE EVENT DATE: 20150430
